FAERS Safety Report 26069876 (Version 1)
Quarter: 2025Q4

REPORT INFORMATION
  Report Type: Spontaneous
  Country: US (occurrence: US)
  Receive Date: 20251120
  Receipt Date: 20251120
  Transmission Date: 20260117
  Serious: No
  Sender: CATALYST PHARMA
  Company Number: US-CATALYST PHARMACEUTICALS-US-CATA-25-01326

PATIENT
  Age: 20 Year
  Sex: Male
  Weight: 66.989 kg

DRUGS (9)
  1. AGAMREE [Suspect]
     Active Substance: VAMOROLONE
     Indication: Duchenne muscular dystrophy
     Dosage: 3.5 MG
     Route: 048
     Dates: start: 2022
  2. AGAMREE [Suspect]
     Active Substance: VAMOROLONE
     Dosage: 7.5 ML
     Route: 048
     Dates: start: 20240920
  3. AGAMREE [Suspect]
     Active Substance: VAMOROLONE
     Dosage: 3.5 ML DAILY
     Route: 048
     Dates: start: 20250606
  4. DIGESTIVE ADVANTAGE KIDS [Concomitant]
     Indication: Gastrointestinal disorder prophylaxis
     Dosage: TWO TABLETS TWICE DAILY
     Route: 048
  5. LISINOPRIL [Concomitant]
     Active Substance: LISINOPRIL
     Indication: Cardiovascular event prophylaxis
     Dosage: 2.5 MG DAILY
     Route: 048
  6. VITAMIN E [Concomitant]
     Active Substance: .ALPHA.-TOCOPHEROL
     Indication: Pruritus
     Dosage: ONE APPLICATION AS NEEDED
     Route: 061
  7. VITAMIN D [Concomitant]
     Active Substance: VITAMIN D NOS
     Indication: Osteoporosis
     Dosage: 1.25 MG 5000 UNITS WEEKLY
     Route: 048
  8. CALTRATE 600 MG+D PLUS MINERALS [Concomitant]
     Indication: Osteoporosis
     Dosage: ONE TABLET DAILY
     Route: 048
  9. GNP VITAMIN E [Concomitant]
     Indication: Hypovitaminosis
     Dosage: 180 MG 400 UNITS DAILY
     Route: 048

REACTIONS (3)
  - Pruritus [Unknown]
  - Skin striae [Unknown]
  - Insomnia [Not Recovered/Not Resolved]

NARRATIVE: CASE EVENT DATE: 20250801
